FAERS Safety Report 18927918 (Version 1)
Quarter: 2021Q1

REPORT INFORMATION
  Report Type: Spontaneous
  Country: US (occurrence: US)
  Receive Date: 20210223
  Receipt Date: 20210223
  Transmission Date: 20210420
  Serious: Yes (Hospitalization)
  Sender: FDA-Public Use
  Company Number: None

PATIENT
  Sex: Male
  Weight: 111.3 kg

DRUGS (6)
  1. CYTARABINE. [Concomitant]
     Active Substance: CYTARABINE
  2. DAUNORUBICIN DEXAMETHASONE [Concomitant]
  3. METHOTREXATE. [Concomitant]
     Active Substance: METHOTREXATE
  4. DEXAMETHASONE. [Concomitant]
     Active Substance: DEXAMETHASONE
  5. VINCRISTINE SULFATE. [Concomitant]
     Active Substance: VINCRISTINE SULFATE
  6. ONCASPAR [Suspect]
     Active Substance: PEGASPARGASE

REACTIONS (6)
  - Tremor [None]
  - Palpitations [None]
  - Pain in extremity [None]
  - Pulmonary embolism [None]
  - Deep vein thrombosis [None]
  - Tachycardia [None]

NARRATIVE: CASE EVENT DATE: 20210221
